FAERS Safety Report 12487867 (Version 1)
Quarter: 2016Q2

REPORT INFORMATION
  Report Type: Spontaneous
  Country: US (occurrence: US)
  Receive Date: 20160622
  Receipt Date: 20160622
  Transmission Date: 20160815
  Serious: Yes (Other)
  Sender: FDA-Public Use
  Company Number: US-PROCTER_AND_GAMBLE-GS16077201

PATIENT
  Age: 18 Year
  Sex: Female

DRUGS (1)
  1. CREST BAKING SODA AND PEROXIDE WHITENING WITH TARTAR PROTECTION [Suspect]
     Active Substance: SODIUM FLUORIDE
     Dosage: SIZE OF PEA OR A LITTLE BIT BIGGER ONCE A DAY USUALLY. SOMETIMES TWICE A DAY
     Route: 002

REACTIONS (4)
  - Toothache [Not Recovered/Not Resolved]
  - Tooth disorder [Not Recovered/Not Resolved]
  - Tooth fracture [Not Recovered/Not Resolved]
  - Sensitivity of teeth [Not Recovered/Not Resolved]
